FAERS Safety Report 8514803-5 (Version None)
Quarter: 2012Q3

REPORT INFORMATION
  Report Type: 
  Country: None (occurrence: None)
  Receive Date: 20120717
  Receipt Date: 20120711
  Transmission Date: 20120928
  Serious: Yes (Hospitalization)
  Sender: FDA-Public Use
  Company Number: DE-B.I. PHARMACEUTICALS,INC./RIDGEFIELD-2012-DE-01638DE

PATIENT
  Age: 75 Year
  Sex: Male
  Weight: 104 kg

DRUGS (4)
  1. SILYMARIN [Concomitant]
     Dosage: 412 MG
     Route: 048
  2. ASPIRIN [Concomitant]
     Dosage: 100 MG
     Route: 048
  3. VALSARTAN [Concomitant]
     Dosage: 212 MG
     Route: 048
  4. PRADAXA [Suspect]
     Indication: ATRIAL FIBRILLATION
     Dosage: 220 MG
     Route: 048
     Dates: start: 20120401, end: 20120524

REACTIONS (1)
  - PANCYTOPENIA [None]
